FAERS Safety Report 18300592 (Version 3)
Quarter: 2020Q4

REPORT INFORMATION
  Report Type: Report from Study
  Country: US (occurrence: US)
  Receive Date: 20200923
  Receipt Date: 20201019
  Transmission Date: 20210113
  Serious: Yes (Hospitalization, Other)
  Sender: FDA-Public Use
  Company Number: US-BAUSCH-BL-2020-026999

PATIENT
  Age: 8 Decade
  Sex: Female

DRUGS (3)
  1. DULOXETINE. [Concomitant]
     Active Substance: DULOXETINE
     Indication: PRODUCT USED FOR UNKNOWN INDICATION
     Route: 048
  2. XIFAXAN [Suspect]
     Active Substance: RIFAXIMIN
     Indication: HEPATIC CIRRHOSIS
     Dosage: APPROXIMATELY 30/AUG/2018
     Route: 048
     Dates: start: 2016, end: 201808
  3. XIFAXAN [Suspect]
     Active Substance: RIFAXIMIN
     Indication: AMMONIA ABNORMAL

REACTIONS (8)
  - Insurance issue [Unknown]
  - Hospitalisation [Unknown]
  - Rash [Unknown]
  - Therapy interrupted [Unknown]
  - Clostridium difficile infection [Unknown]
  - Cystitis [Unknown]
  - Diverticulitis [Unknown]
  - Disease recurrence [Unknown]

NARRATIVE: CASE EVENT DATE: 201808
